FAERS Safety Report 9331437 (Version 1)
Quarter: 2013Q2

REPORT INFORMATION
  Report Type: Spontaneous
  Country: CN (occurrence: CN)
  Receive Date: 20130605
  Receipt Date: 20130605
  Transmission Date: 20140414
  Serious: Yes (Other)
  Sender: FDA-Public Use
  Company Number: CN-ASTRAZENECA-2013SE38916

PATIENT
  Age: 20040 Day
  Sex: Female
  Weight: 51 kg

DRUGS (6)
  1. PROPOFOL [Suspect]
     Indication: POSTOPERATIVE CARE
     Route: 042
     Dates: start: 20111226, end: 20111226
  2. SUCCINYLATED GELATIN [Suspect]
     Indication: VOLUME BLOOD DECREASED
     Route: 041
     Dates: start: 20111226, end: 20111226
  3. MIDAZOLAM MALEATE [Concomitant]
     Indication: POSTOPERATIVE CARE
     Route: 042
     Dates: start: 20111226, end: 20111226
  4. FENTANYL CITRATE [Concomitant]
     Indication: POSTOPERATIVE CARE
     Route: 042
     Dates: start: 20111226, end: 20111226
  5. VECURONIUM [Concomitant]
     Route: 042
     Dates: start: 20111226, end: 20111226
  6. LACTATED RINGER^S SOLUTION [Concomitant]
     Dates: start: 20111226, end: 20111226

REACTIONS (4)
  - Peritoneal haemorrhage [Recovered/Resolved]
  - Eye pain [Recovered/Resolved]
  - Eyelid oedema [Recovered/Resolved]
  - Rash [Recovered/Resolved]
